FAERS Safety Report 8431475-9 (Version None)
Quarter: 2012Q2

REPORT INFORMATION
  Report Type: 
  Country: None (occurrence: None)
  Receive Date: 20120604
  Receipt Date: 20120524
  Transmission Date: 20120825
  Serious: Yes (Other)
  Sender: FDA-Public Use
  Company Number: KAD201205-000320

PATIENT
  Age: 60 Year
  Sex: Female

DRUGS (5)
  1. ERYTHROPOIETIN (ERYTHROPOIETIN) [Suspect]
  2. PEGINTERFERON ALFA-2A [Suspect]
  3. METFORMIN HCL [Concomitant]
  4. RIBAVIRIN [Suspect]
  5. INSULIN GLARGINE [Concomitant]

REACTIONS (2)
  - ANAEMIA [None]
  - GLYCOSYLATED HAEMOGLOBIN DECREASED [None]
